FAERS Safety Report 24550878 (Version 1)
Quarter: 2024Q4

REPORT INFORMATION
  Report Type: Spontaneous
  Country: US (occurrence: US)
  Receive Date: 20241025
  Receipt Date: 20241025
  Transmission Date: 20250115
  Serious: No
  Sender: PERRIGO
  Company Number: US-PERRIGO-23US013226

PATIENT
  Age: 78 Year
  Sex: Male
  Weight: 51.701 kg

DRUGS (2)
  1. FAMOTIDINE [Suspect]
     Active Substance: FAMOTIDINE
     Indication: Prophylaxis
     Dosage: 20 MG, BID
     Route: 048
     Dates: start: 20231110
  2. PREDNISONE [Suspect]
     Active Substance: PREDNISONE
     Indication: Pneumonia
     Dosage: 20 MG, TID
     Route: 048
     Dates: start: 20231110

REACTIONS (2)
  - Constipation [Recovered/Resolved]
  - Haemorrhoidal haemorrhage [Recovered/Resolved]

NARRATIVE: CASE EVENT DATE: 20231115
